FAERS Safety Report 19291191 (Version 1)
Quarter: 2021Q2

REPORT INFORMATION
  Report Type: Spontaneous
  Country: PL (occurrence: PL)
  Receive Date: 20210523
  Receipt Date: 20210523
  Transmission Date: 20210717
  Serious: Yes (Other)
  Sender: FDA-Public Use
  Company Number: PL-TEVA-2021-PL-1913512

PATIENT
  Age: 73 Year
  Sex: Male
  Weight: 80 kg

DRUGS (3)
  1. LEUCOVORIN. [Suspect]
     Active Substance: LEUCOVORIN
     Indication: RECTOSIGMOID CANCER
     Dosage: 374MILLIGRAM
     Route: 042
     Dates: start: 20180408, end: 20180411
  2. IRINOTECAN KABI [Suspect]
     Active Substance: IRINOTECAN
     Indication: RECTOSIGMOID CANCER
     Dosage: 336.6MILLIGRAM
     Route: 042
     Dates: start: 20180408, end: 20180411
  3. FLUOROURACIL?EBEWE [Suspect]
     Active Substance: FLUOROURACIL
     Indication: RECTOSIGMOID CANCER
     Dosage: DOSE: 748 MG ? BOLUS, 1122 MG ? DRIP
     Route: 042
     Dates: start: 20180408, end: 20180411

REACTIONS (1)
  - Neutropenia [Unknown]

NARRATIVE: CASE EVENT DATE: 20180430
